FAERS Safety Report 20691333 (Version 1)
Quarter: 2022Q2

REPORT INFORMATION
  Report Type: Spontaneous
  Country: JP (occurrence: JP)
  Receive Date: 20220408
  Receipt Date: 20220408
  Transmission Date: 20220721
  Serious: Yes (Other)
  Sender: FDA-Public Use
  Company Number: JP-UCBJ-CD202202861UCBPHAPROD

PATIENT
  Age: 1 Day
  Sex: Female
  Weight: 2.428 kg

DRUGS (4)
  1. CIMZIA [Suspect]
     Active Substance: CERTOLIZUMAB PEGOL
     Indication: Rheumatoid arthritis
     Dosage: 400 MILLIGRAM, MONTHLY (QM)
     Route: 064
     Dates: start: 201903, end: 20190902
  2. PREDNISOLONE [Suspect]
     Active Substance: PREDNISOLONE
     Indication: Rheumatoid arthritis
     Dosage: 2.5 MILLIGRAM, 2X/DAY (BID)
     Route: 064
     Dates: start: 20191028
  3. AZULFIDINE EN-TABS [Concomitant]
     Active Substance: SULFASALAZINE
     Indication: Rheumatoid arthritis
     Dosage: 500 MILLIGRAM, 2X/DAY (BID)
     Route: 064
     Dates: start: 201505
  4. ASPIRIN [Concomitant]
     Active Substance: ASPIRIN
     Indication: Antiphospholipid antibodies positive
     Dosage: 100 MILLIGRAM, ONCE DAILY (QD)
     Route: 064
     Dates: start: 20190318, end: 20190929

REACTIONS (3)
  - Low birth weight baby [Recovered/Resolved]
  - Maternal exposure during pregnancy [Unknown]
  - Maternal exposure before pregnancy [Unknown]

NARRATIVE: CASE EVENT DATE: 20191124
